FAERS Safety Report 4333697-5 (Version None)
Quarter: 2004Q2

REPORT INFORMATION
  Report Type: 
  Country: None (occurrence: None)
  Receive Date: 20040406
  Receipt Date: 20040406
  Transmission Date: 20050107
  Serious: Yes (Death)
  Sender: FDA-Public Use
  Company Number: None

PATIENT
  Age: 81 Year
  Sex: Male

DRUGS (4)
  1. TAXOTERE [Suspect]
     Indication: NEOPLASM RECURRENCE
     Dosage: 72 MG IV
     Route: 042
     Dates: start: 20040305
  2. TAXOTERE [Suspect]
     Indication: NEOPLASM RECURRENCE
     Dosage: 72 MG IV
     Route: 042
     Dates: start: 20040312
  3. CAMPTOSAR [Suspect]
     Indication: NEOPLASM RECURRENCE
     Dosage: 124 MG IV
     Route: 042
     Dates: start: 20040305
  4. CAMPTOSAR [Suspect]
     Indication: NEOPLASM RECURRENCE
     Dosage: 124 MG IV
     Route: 042
     Dates: start: 20040312

REACTIONS (4)
  - ACQUIRED TRACHEO-OESOPHAGEAL FISTULA [None]
  - NEUTROPENIC SEPSIS [None]
  - PLEURAL EFFUSION [None]
  - PNEUMONIA ASPIRATION [None]
